FAERS Safety Report 4393716-7 (Version None)
Quarter: 2004Q3

REPORT INFORMATION
  Report Type: 
  Country: None (occurrence: None)
  Receive Date: 20040709
  Receipt Date: 20040707
  Transmission Date: 20050211
  Serious: Yes (Other)
  Sender: FDA-Public Use
  Company Number: US-GLAXOSMITHKLINE-A0517250A

PATIENT
  Age: 54 Year
  Sex: Male

DRUGS (8)
  1. ZOFRAN [Suspect]
     Indication: PROPHYLAXIS OF NAUSEA AND VOMITING
     Route: 042
     Dates: start: 20031030, end: 20031030
  2. TOPROL-XL [Concomitant]
  3. LASIX [Concomitant]
  4. COUMADIN [Concomitant]
  5. XANAX [Concomitant]
  6. SYNTHROID [Concomitant]
  7. LOVENOX [Concomitant]
  8. CHEMOTHERAPY [Concomitant]

REACTIONS (7)
  - AGITATION [None]
  - CIRCULATORY COLLAPSE [None]
  - FEELING JITTERY [None]
  - INSOMNIA [None]
  - MANIA [None]
  - TREMOR [None]
  - VOCAL CORD DISORDER [None]
